FAERS Safety Report 7431828-1 (Version None)
Quarter: 2011Q2

REPORT INFORMATION
  Report Type: 
  Country: None (occurrence: None)
  Receive Date: 20110422
  Receipt Date: 20110412
  Transmission Date: 20111010
  Serious: Yes (Hospitalization, Other)
  Sender: FDA-Public Use
  Company Number: BR-ELI_LILLY_AND_COMPANY-BR201104002860

PATIENT
  Sex: Female
  Weight: 42 kg

DRUGS (5)
  1. PRESSAT [Concomitant]
     Indication: HYPERTENSION
     Dosage: 5 MG, QD
  2. PANTOZOL [Concomitant]
     Indication: GASTRITIS
     Dosage: 40 MG, QD
  3. DORMONID [Concomitant]
     Indication: SEDATION
     Dosage: UNK, UNKNOWN
     Route: 065
  4. FORTEO [Suspect]
     Indication: OSTEOPOROSIS
     Dosage: UNK, QD
     Route: 058
     Dates: start: 20110321
  5. DIGOXINE [Concomitant]
     Indication: CARDIAC DISORDER
     Dosage: 0125 MG, OTHER
     Route: 065

REACTIONS (15)
  - ARRHYTHMIA [None]
  - FLATULENCE [None]
  - DIARRHOEA [None]
  - HYPOTENSION [None]
  - CARDIAC DISORDER [None]
  - GENERAL PHYSICAL HEALTH DETERIORATION [None]
  - NEPHROLITHIASIS [None]
  - HOSPITALISATION [None]
  - ABDOMINAL PAIN [None]
  - NAUSEA [None]
  - VOMITING [None]
  - PNEUMONIA [None]
  - MUSCULAR WEAKNESS [None]
  - URINARY TRACT INFECTION [None]
  - ABDOMINAL DISTENSION [None]
